FAERS Safety Report 7989677-1 (Version None)
Quarter: 2011Q4

REPORT INFORMATION
  Report Type: 
  Country: None (occurrence: None)
  Receive Date: 20111215
  Receipt Date: 20111208
  Transmission Date: 20120403
  Serious: Yes (Hospitalization)
  Sender: FDA-Public Use
  Company Number: 2011ST000465

PATIENT
  Age: 82 Year
  Sex: Male
  Weight: 71.2147 kg

DRUGS (1)
  1. MATULANE [Suspect]
     Indication: LYMPHOMA
     Dosage: 200 MG; QD; PO
     Route: 048
     Dates: start: 20111025

REACTIONS (4)
  - ESCHERICHIA INFECTION [None]
  - NEUTROPENIA [None]
  - COLITIS [None]
  - WHITE BLOOD CELL COUNT DECREASED [None]
